FAERS Safety Report 8955636 (Version 1)
Quarter: 2012Q4

REPORT INFORMATION
  Report Type: 
  Country: CH (occurrence: CH)
  Receive Date: 20121207
  Receipt Date: 20121207
  Transmission Date: 20130627
  Serious: Yes (Hospitalization)
  Sender: FDA-Public Use
  Company Number: CH-ROCHE-1164060

PATIENT
  Age: 82 Year
  Sex: Female

DRUGS (11)
  1. TOREM [Suspect]
     Indication: ESSENTIAL HYPERTENSION
     Route: 048
     Dates: end: 200911
  2. METOLAZONE [Interacting]
     Indication: CARDIAC DISORDER
     Route: 048
     Dates: end: 200911
  3. TRIATEC [Suspect]
     Indication: ESSENTIAL HYPERTENSION
     Route: 048
     Dates: end: 200911
  4. SERESTA [Suspect]
     Indication: DEPRESSION
     Route: 048
     Dates: end: 200911
  5. ASPIRIN CARDIO [Concomitant]
     Route: 048
  6. AMLODIPINE BESILATE [Concomitant]
     Route: 048
  7. NITRODERM [Concomitant]
     Route: 058
  8. BELOC [Concomitant]
     Route: 048
  9. MAGNESIOCARD [Concomitant]
     Route: 048
  10. SERETIDE DISKUS [Concomitant]
     Route: 055
  11. CALCIMAGON-D3 [Concomitant]
     Route: 048

REACTIONS (6)
  - Drug interaction [Recovered/Resolved]
  - Renal failure chronic [Recovering/Resolving]
  - Stupor [Recovered/Resolved]
  - Hyponatraemia [Recovered/Resolved]
  - Hypokalaemia [Recovered/Resolved]
  - Dehydration [Recovered/Resolved]
